FAERS Safety Report 4583905-0 (Version None)
Quarter: 2005Q1

REPORT INFORMATION
  Report Type: 
  Country: None (occurrence: None)
  Receive Date: 20050211
  Receipt Date: 20050207
  Transmission Date: 20050727
  Serious: Yes (Hospitalization, Other)
  Sender: FDA-Public Use
  Company Number: FRWYE403007FEB05

PATIENT
  Age: 46 Year
  Sex: Male

DRUGS (1)
  1. EFFEXOR XR [Suspect]
     Dosage: 30 CAPS EQUIVALENT TO 1.125 G ORAL
     Route: 048
     Dates: start: 20041028, end: 20041028

REACTIONS (6)
  - EPILEPSY [None]
  - INJURY [None]
  - INTENTIONAL MISUSE [None]
  - RHABDOMYOLYSIS [None]
  - SUICIDE ATTEMPT [None]
  - TONGUE BITING [None]
